FAERS Safety Report 5963444-2 (Version None)
Quarter: 2008Q4

REPORT INFORMATION
  Report Type: 
  Country: None (occurrence: None)
  Receive Date: 20081119
  Receipt Date: 20080905
  Transmission Date: 20090506
  Serious: No
  Sender: FDA-Public Use
  Company Number: WAES 0809USA00894

PATIENT
  Age: 74 Year
  Sex: Female

DRUGS (2)
  1. JANUVIA [Suspect]
     Indication: TYPE 2 DIABETES MELLITUS
     Dosage: 100 MG/DAILY/PO
     Route: 048
     Dates: start: 20080901, end: 20080904
  2. GLUCOPHAGE [Concomitant]

REACTIONS (6)
  - ADVERSE EVENT [None]
  - DACRYOSTENOSIS ACQUIRED [None]
  - EYE SWELLING [None]
  - HEMICEPHALALGIA [None]
  - OCULAR HYPERAEMIA [None]
  - VISION BLURRED [None]
